FAERS Safety Report 8841987 (Version 1)
Quarter: 2012Q4

REPORT INFORMATION
  Report Type: Spontaneous
  Country: US (occurrence: None)
  Receive Date: 20121015
  Receipt Date: 20121015
  Transmission Date: 20130627
  Serious: Yes (Hospitalization)
  Sender: FDA-Public Use
  Company Number: None

PATIENT
  Sex: Female

DRUGS (1)
  1. RANEXA [Suspect]
     Indication: HEART DISORDER
     Dates: start: 20120904

REACTIONS (8)
  - Nausea [None]
  - Dizziness [None]
  - Headache [None]
  - Abdominal pain upper [None]
  - Musculoskeletal chest pain [None]
  - Constipation [None]
  - Haemorrhoidal haemorrhage [None]
  - Eye pain [None]
